FAERS Safety Report 6454170-4 (Version None)
Quarter: 2009Q4

REPORT INFORMATION
  Report Type: 
  Country: None (occurrence: None)
  Receive Date: 20091124
  Receipt Date: 20091116
  Transmission Date: 20100525
  Serious: Yes (Hospitalization)
  Sender: FDA-Public Use
  Company Number: GXKR2009US12512

PATIENT
  Age: 48 Year
  Sex: Female

DRUGS (12)
  1. CLONAZEPAM (NGX) [Suspect]
     Indication: ANXIETY
     Dosage: 1 MG, BID
     Route: 048
  2. CLONAZEPAM (NGX) [Suspect]
     Dosage: 2 MG, BID
     Route: 048
  3. HALOPERIDOL (NGX) [Interacting]
     Indication: PARANOIA
     Dosage: 3 MG, TID
     Route: 065
  4. HALOPERIDOL (NGX) [Interacting]
     Dosage: 3 MG, QID
     Route: 065
  5. HALOPERIDOL (NGX) [Interacting]
     Dosage: 5 MG, 2 TO 3 DOSES WEEKLY, PRN
     Route: 065
  6. DEPAKENE [Interacting]
     Indication: SCHIZOPHRENIA
     Dosage: 1750 MG/DAY
     Route: 065
  7. QUETIAPINE [Concomitant]
     Dosage: 25 MG, UNK
     Route: 048
  8. QUETIAPINE [Concomitant]
     Dosage: 125 MG, TID
     Route: 048
  9. BENZATROPINE [Concomitant]
     Dosage: 1 MG, BID
     Route: 065
  10. RISPERDAL [Concomitant]
     Dosage: 50 MG, EVERY TWO WEEKS
     Route: 030
  11. GUAIFENESIN W/DEXTROMETHORPHAN [Concomitant]
     Indication: COUGH
  12. DIPHENHYDRAMINE HCL [Concomitant]
     Dosage: 25 MG, BID
     Route: 065

REACTIONS (8)
  - ACTIVITIES OF DAILY LIVING IMPAIRED [None]
  - AMNESIA [None]
  - COGNITIVE DISORDER [None]
  - DEMENTIA [None]
  - DISORIENTATION [None]
  - DRUG INTERACTION [None]
  - GAIT DISTURBANCE [None]
  - NERVOUS SYSTEM DISORDER [None]
